FAERS Safety Report 6180995-9 (Version None)
Quarter: 2009Q2

REPORT INFORMATION
  Report Type: 
  Country: None (occurrence: None)
  Receive Date: 20090504
  Receipt Date: 20090504
  Transmission Date: 20091009
  Serious: Yes (Other)
  Sender: FDA-Public Use
  Company Number: None

PATIENT
  Age: 28 Year
  Sex: Male
  Weight: 63.5036 kg

DRUGS (1)
  1. CELEXA [Suspect]
     Indication: DIZZINESS
     Dosage: 5MG FEW WEEKS DAILY PO
     Route: 048
     Dates: start: 20090121, end: 20090219

REACTIONS (8)
  - DIZZINESS [None]
  - DYSKINESIA [None]
  - FEELING ABNORMAL [None]
  - INSOMNIA [None]
  - MALAISE [None]
  - MENTAL DISORDER [None]
  - RESTLESS LEGS SYNDROME [None]
  - TREMOR [None]
